FAERS Safety Report 8203923-0 (Version None)
Quarter: 2012Q1

REPORT INFORMATION
  Report Type: 
  Country: None (occurrence: None)
  Receive Date: 20120313
  Receipt Date: 20120305
  Transmission Date: 20120608
  Serious: Yes (Hospitalization)
  Sender: FDA-Public Use
  Company Number: US-BAYER-2011-105714

PATIENT
  Age: 19 Year
  Sex: Female
  Weight: 77 kg

DRUGS (7)
  1. DROSPIRENONE AND ETHINYL ESTRADIOL [Suspect]
     Dosage: UNK
     Dates: start: 20081101, end: 20090101
  2. LEVOTHYROXINE SODIUM [Concomitant]
     Dosage: 137 MCG/24HR, UNK
  3. IBUPROFEN [Concomitant]
  4. MELATONIN [Concomitant]
     Dosage: 30 MG, QD
     Route: 048
     Dates: start: 20090914
  5. YAZ [Suspect]
     Dosage: UNK
     Dates: start: 20081001, end: 20090101
  6. VYVANSE [Concomitant]
     Route: 048
  7. MOTRIN [Concomitant]

REACTIONS (3)
  - PAIN [None]
  - DEEP VEIN THROMBOSIS [None]
  - INJURY [None]
